FAERS Safety Report 8663324 (Version 4)
Quarter: 2013Q1

REPORT INFORMATION
  Report Type: Spontaneous
  Country: US (occurrence: None)
  Receive Date: 20120622
  Receipt Date: 20130304
  Transmission Date: 20140127
  Serious: Yes (Hospitalization)
  Sender: FDA-Public Use
  Company Number: 003-078

PATIENT
  Sex: Male

DRUGS (1)
  1. CROFAB [Suspect]
     Indication: SNAKE BITE
     Dosage: 18 VIALS TOTAL
     Dates: start: 20120531, end: 20120606

REACTIONS (6)
  - International normalised ratio increased [None]
  - Platelet count decreased [None]
  - Activated partial thromboplastin time prolonged [None]
  - Compartment syndrome [None]
  - White blood cell count increased [None]
  - Red blood cell count decreased [None]
